FAERS Safety Report 24878021 (Version 4)
Quarter: 2025Q1

REPORT INFORMATION
  Report Type: Spontaneous
  Country: US (occurrence: US)
  Receive Date: 20250123
  Receipt Date: 20250306
  Transmission Date: 20250409
  Serious: No
  Sender: BRISTOL-MYERS SQUIBB COMPANY
  Company Number: US-BRISTOL-MYERS SQUIBB COMPANY-2025-010031

PATIENT
  Age: 82 Year
  Sex: Male

DRUGS (1)
  1. LENALIDOMIDE [Suspect]
     Active Substance: LENALIDOMIDE
     Indication: Myelodysplastic syndrome
     Route: 048
     Dates: start: 20250108

REACTIONS (5)
  - Diarrhoea [Unknown]
  - Full blood count decreased [Unknown]
  - Fatigue [Unknown]
  - Dyspnoea [Unknown]
  - Haemoglobin decreased [Not Recovered/Not Resolved]
